FAERS Safety Report 21167361 (Version 1)
Quarter: 2022Q3

REPORT INFORMATION
  Report Type: Spontaneous
  Country: US (occurrence: None)
  Receive Date: 20220803
  Receipt Date: 20220803
  Transmission Date: 20221026
  Serious: No
  Sender: FDA-Public Use
  Company Number: None

PATIENT
  Age: 73 Year
  Sex: Male
  Weight: 75.3 kg

DRUGS (1)
  1. STELARA [Suspect]
     Active Substance: USTEKINUMAB
     Indication: Psoriasis
     Dosage: INJECT 45MG  SUBCUTANEOUSLY ONCE A WEEK  AS DIRECTED?
     Route: 057
     Dates: start: 201709

REACTIONS (2)
  - COVID-19 [None]
  - Influenza [None]
